FAERS Safety Report 12741330 (Version 2)
Quarter: 2016Q4

REPORT INFORMATION
  Report Type: Spontaneous
  Country: US (occurrence: US)
  Receive Date: 20160914
  Receipt Date: 20161025
  Transmission Date: 20170207
  Serious: No
  Sender: FDA-Public Use
  Company Number: US-PFIZER INC-2016423335

PATIENT
  Age: 17 Year
  Sex: Male
  Weight: 115.6 kg

DRUGS (7)
  1. HALDOL [Concomitant]
     Active Substance: HALOPERIDOL
     Indication: BIPOLAR DISORDER
  2. VIAGRA [Suspect]
     Active Substance: SILDENAFIL CITRATE
     Indication: ERECTILE DYSFUNCTION
     Dosage: 100 MG, AS NEEDED
     Route: 048
     Dates: start: 1999
  3. RHINO [Concomitant]
     Dosage: UNK
  4. VIAGRA [Suspect]
     Active Substance: SILDENAFIL CITRATE
     Dosage: 50 MG, 2X/DAY
     Route: 048
     Dates: start: 201609
  5. HALDOL [Concomitant]
     Active Substance: HALOPERIDOL
     Indication: HYPERTENSION
     Dosage: 50 MG, MONTHLY
     Dates: start: 1982
  6. RHINO [Concomitant]
     Indication: ERECTILE DYSFUNCTION
     Dosage: 4000 MG, UNK
     Dates: start: 2015, end: 201608
  7. VIAGRA [Suspect]
     Active Substance: SILDENAFIL CITRATE
     Dosage: 50 MG, 1X/DAY
     Route: 048

REACTIONS (5)
  - Asthenia [Unknown]
  - Sleep apnoea syndrome [Unknown]
  - Circumstance or information capable of leading to medication error [Unknown]
  - Energy increased [Unknown]
  - Drug intolerance [Unknown]

NARRATIVE: CASE EVENT DATE: 1999
